FAERS Safety Report 20536194 (Version 1)
Quarter: 2022Q1

REPORT INFORMATION
  Report Type: Spontaneous
  Country: US (occurrence: None)
  Receive Date: 20220302
  Receipt Date: 20220302
  Transmission Date: 20220423
  Serious: No
  Sender: FDA-Public Use
  Company Number: US-ROCHE-2820056

PATIENT
  Age: 12 Year
  Sex: Female

DRUGS (4)
  1. NUTROPIN [Suspect]
     Active Substance: SOMATROPIN
     Indication: Hypopituitarism
     Dosage: HS (AT BED TIME0
     Route: 058
     Dates: start: 201911
  2. NUTROPIN [Suspect]
     Active Substance: SOMATROPIN
  3. NUTROPIN [Suspect]
     Active Substance: SOMATROPIN
     Dosage: HS (AT BED TIME0
     Route: 058
     Dates: start: 20200201
  4. NUTROPIN [Suspect]
     Active Substance: SOMATROPIN

REACTIONS (1)
  - Headache [Unknown]

NARRATIVE: CASE EVENT DATE: 20210427
